FAERS Safety Report 11408848 (Version 17)
Quarter: 2017Q1

REPORT INFORMATION
  Report Type: Report from Study
  Country: CA (occurrence: CA)
  Receive Date: 20150823
  Receipt Date: 20170113
  Transmission Date: 20170428
  Serious: Yes (Other)
  Sender: FDA-Public Use
  Company Number: CA-ROCHE-1599373

PATIENT
  Age: 55 Year
  Sex: Female
  Weight: 48 kg

DRUGS (11)
  1. TECTA [Concomitant]
     Active Substance: PANTOPRAZOLE MAGNESIUM
  2. OXYCOCET [Concomitant]
     Active Substance: ACETAMINOPHEN\OXYCODONE HYDROCHLORIDE
  3. CYMBALTA [Concomitant]
     Active Substance: DULOXETINE HYDROCHLORIDE
  4. ADVAIR HFA [Concomitant]
     Active Substance: FLUTICASONE PROPIONATE\SALMETEROL XINAFOATE
  5. SYNTHROID [Concomitant]
     Active Substance: LEVOTHYROXINE SODIUM
  6. VENTOLIN [Concomitant]
     Active Substance: ALBUTEROL SULFATE
  7. ABILIFY [Concomitant]
     Active Substance: ARIPIPRAZOLE
  8. ACTEMRA [Suspect]
     Active Substance: TOCILIZUMAB
     Route: 042
     Dates: start: 20160315
  9. ZOPICLONE [Concomitant]
     Active Substance: ZOPICLONE
  10. ENBREL [Concomitant]
     Active Substance: ETANERCEPT
  11. ACTEMRA [Suspect]
     Active Substance: TOCILIZUMAB
     Indication: RHEUMATOID ARTHRITIS
     Route: 042
     Dates: start: 20150527

REACTIONS (20)
  - Diarrhoea [Not Recovered/Not Resolved]
  - Wound infection [Recovered/Resolved]
  - Influenza [Not Recovered/Not Resolved]
  - Hypotension [Not Recovered/Not Resolved]
  - Oxygen saturation decreased [Unknown]
  - Dizziness [Not Recovered/Not Resolved]
  - Antipsychotic drug level increased [Unknown]
  - Vomiting [Unknown]
  - Laceration [Recovered/Resolved]
  - Weight increased [Unknown]
  - Blood pressure diastolic decreased [Unknown]
  - Upper respiratory tract infection [Recovered/Resolved]
  - Oedema peripheral [Not Recovered/Not Resolved]
  - Blood pressure diastolic decreased [Unknown]
  - Oedema [Not Recovered/Not Resolved]
  - Weight decreased [Not Recovered/Not Resolved]
  - Secretion discharge [Not Recovered/Not Resolved]
  - Nasopharyngitis [Not Recovered/Not Resolved]
  - Constipation [Not Recovered/Not Resolved]
  - Hypotension [Unknown]

NARRATIVE: CASE EVENT DATE: 20150624
